FAERS Safety Report 8056768-9 (Version None)
Quarter: 2012Q1

REPORT INFORMATION
  Report Type: 
  Country: None (occurrence: None)
  Receive Date: 20120119
  Receipt Date: 20120117
  Transmission Date: 20120608
  Serious: Yes (Hospitalization)
  Sender: FDA-Public Use
  Company Number: US-GLAXOSMITHKLINE-A0915616A

PATIENT
  Age: 60 Year
  Sex: Male

DRUGS (1)
  1. AVANDIA [Suspect]
     Indication: DIABETES MELLITUS
     Dosage: 4MG PER DAY
     Route: 048

REACTIONS (10)
  - CHEST PAIN [None]
  - VENTRICULAR TACHYCARDIA [None]
  - CARDIOMEGALY [None]
  - CORONARY ARTERY DISEASE [None]
  - CARDIAC PACEMAKER INSERTION [None]
  - ARTERIOSCLEROSIS CORONARY ARTERY [None]
  - DYSPNOEA [None]
  - MYOCARDIAL INFARCTION [None]
  - HYPERLIPIDAEMIA [None]
  - OEDEMA [None]
